FAERS Safety Report 6874604-0 (Version None)
Quarter: 2010Q3

REPORT INFORMATION
  Report Type: 
  Country: None (occurrence: None)
  Receive Date: 20100722
  Receipt Date: 20100706
  Transmission Date: 20110219
  Serious: Yes (Other)
  Sender: FDA-Public Use
  Company Number: DSA_43499_2010

PATIENT
  Age: 46 Year
  Sex: Female

DRUGS (2)
  1. BUPROPION HCL [Suspect]
     Indication: DEPRESSION
     Dosage: (150 MG,)
     Dates: start: 20100301, end: 20100301
  2. ALPRAZOLAM [Concomitant]

REACTIONS (1)
  - SELF-INJURIOUS IDEATION [None]
